FAERS Safety Report 5871786-4 (Version None)
Quarter: 2008Q3

REPORT INFORMATION
  Report Type: 
  Country: None (occurrence: None)
  Receive Date: 20080905
  Receipt Date: 20080827
  Transmission Date: 20090109
  Serious: Yes (Hospitalization)
  Sender: FDA-Public Use
  Company Number: FR-BRISTOL-MYERS SQUIBB COMPANY-13812912

PATIENT
  Age: 81 Year
  Sex: Male

DRUGS (1)
  1. IRBESARTAN [Suspect]
     Indication: CARDIAC FAILURE
     Dates: start: 20030307, end: 20041120

REACTIONS (1)
  - RENAL FAILURE [None]
